FAERS Safety Report 4349665-3 (Version None)
Quarter: 2004Q2

REPORT INFORMATION
  Report Type: 
  Country: None (occurrence: None)
  Receive Date: 20040426
  Receipt Date: 20030709
  Transmission Date: 20050107
  Serious: Yes (Hospitalization, Other)
  Sender: FDA-Public Use
  Company Number: 2003026402

PATIENT
  Age: 66 Year
  Sex: Male
  Weight: 80.7403 kg

DRUGS (4)
  1. ZITHROMAX [Suspect]
     Indication: PYREXIA
     Dosage: 500 MG (DAILY), ORAL
     Route: 048
     Dates: start: 20030616, end: 20030616
  2. ATORVASTATIN (ATORVASTATIN) [Concomitant]
  3. ACETYLSALICYLIC ACID SRT [Concomitant]
  4. GLUCOSAMINE (GLUCOSAMINE) [Concomitant]

REACTIONS (3)
  - HEPATOTOXICITY [None]
  - NAUSEA [None]
  - VOMITING [None]
